FAERS Safety Report 4594411-1 (Version None)
Quarter: 2005Q1

REPORT INFORMATION
  Report Type: 
  Country: None (occurrence: None)
  Receive Date: 20050301
  Receipt Date: 20040116
  Transmission Date: 20050727
  Serious: No
  Sender: FDA-Public Use
  Company Number: US-GLAXOSMITHKLINE-A0493582A

PATIENT
  Age: 68 Year
  Sex: Male

DRUGS (3)
  1. VALTREX [Suspect]
     Indication: ILL-DEFINED DISORDER
     Dosage: 500MG TWICE PER DAY
     Route: 048
     Dates: start: 20040112, end: 20040114
  2. ATENOLOL [Concomitant]
  3. ALBUTEROL [Concomitant]

REACTIONS (2)
  - HEART RATE INCREASED [None]
  - HEART RATE IRREGULAR [None]
